FAERS Safety Report 13983364 (Version 1)
Quarter: 2017Q3

REPORT INFORMATION
  Report Type: Spontaneous
  Country: JP (occurrence: JP)
  Receive Date: 20170918
  Receipt Date: 20170918
  Transmission Date: 20171128
  Serious: Yes (Other)
  Sender: FDA-Public Use
  Company Number: JP-PFIZER INC-2017397884

PATIENT
  Sex: Male

DRUGS (2)
  1. URALYT /06402701/ [Concomitant]
     Active Substance: POTASSIUM CITRATE\TRISODIUM CITRATE DIHYDRATE
     Dosage: UNK
     Route: 048
  2. CELECOX [Suspect]
     Active Substance: CELECOXIB
     Indication: PAIN IN EXTREMITY
     Dosage: 2 TABLETS, ONCE DAILY
     Route: 048
     Dates: start: 20170905, end: 20170906

REACTIONS (5)
  - Musculoskeletal pain [Unknown]
  - Pyrexia [Recovering/Resolving]
  - Rash macular [Recovering/Resolving]
  - Retinal haemorrhage [Not Recovered/Not Resolved]
  - Pruritus [Not Recovered/Not Resolved]

NARRATIVE: CASE EVENT DATE: 20170906
